FAERS Safety Report 10298231 (Version 1)
Quarter: 2014Q3

REPORT INFORMATION
  Report Type: Spontaneous
  Country: US (occurrence: US)
  Receive Date: 20140711
  Receipt Date: 20140711
  Transmission Date: 20150326
  Serious: No
  Sender: FDA-Public Use
  Company Number: US-GLAXOSMITHKLINE-A1060664A

PATIENT
  Age: 63 Year
  Sex: Female

DRUGS (3)
  1. VITAMINS [Concomitant]
     Active Substance: VITAMINS
  2. TAGAMET [Concomitant]
     Active Substance: CIMETIDINE
  3. FLOVENT [Suspect]
     Active Substance: FLUTICASONE PROPIONATE
     Indication: HYPERSENSITIVITY
     Dosage: 1PUFF TWICE PER DAY
     Route: 055
     Dates: start: 201101

REACTIONS (7)
  - Dry mouth [Recovering/Resolving]
  - Product quality issue [Recovering/Resolving]
  - Asthma [Recovering/Resolving]
  - Throat irritation [Recovering/Resolving]
  - Drug ineffective [Recovering/Resolving]
  - Cough [Recovering/Resolving]
  - Dyspnoea [Recovering/Resolving]

NARRATIVE: CASE EVENT DATE: 20140202
